FAERS Safety Report 9783525 (Version 1)
Quarter: 2013Q4

REPORT INFORMATION
  Report Type: Spontaneous
  Country: US (occurrence: None)
  Receive Date: 20131223
  Receipt Date: 20131223
  Transmission Date: 20140711
  Serious: Yes (Other)
  Sender: FDA-Public Use
  Company Number: 2013P1021522

PATIENT
  Age: 46 Year
  Sex: Female

DRUGS (10)
  1. INFUMORPH [Suspect]
     Indication: PAIN
     Route: 048
     Dates: start: 20070213
  2. PREDNISONE [Concomitant]
  3. LEVOTHYROXINE [Concomitant]
  4. LASIX [Concomitant]
  5. POTASSIUM [Concomitant]
  6. OMEPRAZOLE [Concomitant]
  7. COLCHICINE [Concomitant]
  8. LOPRESSOR [Concomitant]
  9. PROMETHAZINE [Concomitant]
  10. BLOOD THINNER (UNSPECIFIED) [Concomitant]

REACTIONS (11)
  - Device alarm issue [None]
  - Stress [None]
  - Urinary tract infection [None]
  - Hyperhidrosis [None]
  - Local swelling [None]
  - Local swelling [None]
  - Sepsis [None]
  - Device issue [None]
  - Device dislocation [None]
  - Pulmonary oedema [None]
  - Impaired healing [None]
